FAERS Safety Report 12413828 (Version 5)
Quarter: 2016Q3

REPORT INFORMATION
  Report Type: Spontaneous
  Country: FI (occurrence: FI)
  Receive Date: 20160527
  Receipt Date: 20160705
  Transmission Date: 20161109
  Serious: Yes (Other)
  Sender: FDA-Public Use
  Company Number: FI-ABBVIE-16P-055-1635092-00

PATIENT
  Age: 49 Year
  Sex: Female

DRUGS (1)
  1. SEVORANE [Suspect]
     Active Substance: SEVOFLURANE
     Indication: PRODUCT USED FOR UNKNOWN INDICATION
     Route: 055

REACTIONS (15)
  - Hypersensitivity [Unknown]
  - Occupational exposure to product [Recovered/Resolved]
  - Swollen tongue [Recovered/Resolved]
  - Heart rate irregular [Recovered/Resolved]
  - Oropharyngeal spasm [Unknown]
  - Dysgeusia [Recovered/Resolved]
  - Blood pressure increased [Recovered/Resolved]
  - Ocular hyperaemia [Unknown]
  - Oropharyngeal pain [Unknown]
  - Malaise [Recovered/Resolved with Sequelae]
  - Salivary hypersecretion [Recovered/Resolved]
  - Dysphagia [Recovered/Resolved]
  - Tremor [Recovered/Resolved]
  - Heart rate increased [Recovered/Resolved]
  - Oedema mucosal [Unknown]

NARRATIVE: CASE EVENT DATE: 20160512
